FAERS Safety Report 21552848 (Version 1)
Quarter: 2022Q4

REPORT INFORMATION
  Report Type: Spontaneous
  Country: DE (occurrence: DE)
  Receive Date: 20221104
  Receipt Date: 20221104
  Transmission Date: 20230113
  Serious: Yes (Hospitalization)
  Sender: FDA-Public Use
  Company Number: DE-ALKEM LABORATORIES LIMITED-DE-ALKEM-2022-11528

PATIENT
  Sex: Female
  Weight: 65 kg

DRUGS (50)
  1. DEFERASIROX [Suspect]
     Active Substance: DEFERASIROX
     Indication: Iron overload
     Dosage: 13.5 MILLIGRAM/KILOGRAM
     Route: 048
     Dates: start: 20180209, end: 20180215
  2. DEFERASIROX [Suspect]
     Active Substance: DEFERASIROX
     Dosage: UNK
     Route: 048
     Dates: start: 20180216, end: 20180731
  3. DEFERASIROX [Suspect]
     Active Substance: DEFERASIROX
     Dosage: 8.2 MILLIGRAM/KILOGRAM
     Route: 048
     Dates: start: 20180801
  4. DESFERAL [Suspect]
     Active Substance: DEFEROXAMINE MESYLATE
     Indication: Serum ferritin increased
     Dosage: 3 GRAM, QD
     Route: 065
     Dates: start: 20180807, end: 20180807
  5. DESFERAL [Suspect]
     Active Substance: DEFEROXAMINE MESYLATE
     Dosage: 3 GRAM, QD
     Route: 065
     Dates: start: 20180821, end: 20180821
  6. DESFERAL [Suspect]
     Active Substance: DEFEROXAMINE MESYLATE
     Dosage: 3 GRAM, QD
     Route: 065
     Dates: start: 20180904, end: 20180904
  7. DESFERAL [Suspect]
     Active Substance: DEFEROXAMINE MESYLATE
     Dosage: 3 GRAM, QD
     Route: 065
     Dates: start: 20180912, end: 20180912
  8. DESFERAL [Suspect]
     Active Substance: DEFEROXAMINE MESYLATE
     Dosage: 3 GRAM, QD
     Route: 065
     Dates: start: 20180926, end: 20180926
  9. DESFERAL [Suspect]
     Active Substance: DEFEROXAMINE MESYLATE
     Dosage: 3 GRAM, QD
     Route: 065
     Dates: start: 20181011, end: 20181011
  10. DESFERAL [Suspect]
     Active Substance: DEFEROXAMINE MESYLATE
     Dosage: 3 GRAM, QD
     Route: 065
     Dates: start: 20181107, end: 20181107
  11. DESFERAL [Suspect]
     Active Substance: DEFEROXAMINE MESYLATE
     Dosage: 3 GRAM, QD
     Route: 065
     Dates: start: 20181122, end: 20181122
  12. AMITRIPTYLINE [Concomitant]
     Active Substance: AMITRIPTYLINE
     Indication: Depression
     Dosage: UNK, QD
     Route: 065
     Dates: start: 201602
  13. ARCOXIA [Concomitant]
     Active Substance: ETORICOXIB
     Indication: Spinal pain
     Dosage: UNK, QD
     Route: 065
     Dates: start: 20180811, end: 20180831
  14. ASPIRIN [Concomitant]
     Active Substance: ASPIRIN
     Indication: Aortic valve incompetence
     Dosage: UNK, QD
     Route: 065
     Dates: start: 201606
  15. BISOPROLOL [Concomitant]
     Active Substance: BISOPROLOL
     Indication: Hypertension
     Dosage: UNK, QD
     Route: 065
     Dates: end: 20180525
  16. ENOXAPARIN SODIUM [Concomitant]
     Active Substance: ENOXAPARIN SODIUM
     Indication: Product used for unknown indication
     Dosage: UNK, QD
     Route: 065
     Dates: start: 20160202
  17. CEFUROXIME [Concomitant]
     Active Substance: CEFUROXIME
     Indication: Atypical pneumonia
     Dosage: UNK, QD
     Route: 065
  18. Delix [Concomitant]
     Indication: Hypertension
     Dosage: UNK, QD
     Route: 065
  19. DIOVAN [Concomitant]
     Active Substance: VALSARTAN
     Indication: Hypertension
     Dosage: UNK, QD
     Route: 065
  20. FLUVASTATIN [Concomitant]
     Active Substance: FLUVASTATIN SODIUM
     Indication: Hyperlipidaemia
     Dosage: UNK, QD
     Route: 065
  21. DIMETHINDENE [Concomitant]
     Active Substance: DIMETHINDENE
     Indication: Dermatitis
     Dosage: UNK, QD
     Route: 065
     Dates: start: 20160107
  22. ASPIRIN [Concomitant]
     Active Substance: ASPIRIN
     Indication: Aortic valve incompetence
     Dosage: UNK, QD
     Route: 065
     Dates: end: 20170403
  23. INTERFERON [Concomitant]
     Active Substance: INTERFERON
     Indication: Myelodysplastic syndrome
     Dosage: UNK
     Route: 065
     Dates: start: 20161104
  24. ISOSORBIDE MONONITRATE [Concomitant]
     Active Substance: ISOSORBIDE MONONITRATE
     Indication: Hypertension
     Dosage: UNK, QD
     Route: 065
  25. LANSOPRAZOLE [Concomitant]
     Active Substance: LANSOPRAZOLE
     Indication: Product used for unknown indication
     Dosage: UNK, QD
     Route: 065
  26. Locol [Concomitant]
     Indication: Hyperlipidaemia
     Dosage: UNK, QD
     Route: 065
  27. FISH OIL\OMEGA-3 FATTY ACIDS [Concomitant]
     Active Substance: FISH OIL\OMEGA-3 FATTY ACIDS
     Indication: Product used for unknown indication
     Dosage: UNK, QD
     Route: 065
  28. PANTOPRAZOLE [Concomitant]
     Active Substance: PANTOPRAZOLE
     Indication: Product used for unknown indication
     Dosage: UNK, QD
     Route: 065
  29. ACETAMINOPHEN [Concomitant]
     Active Substance: ACETAMINOPHEN
     Indication: Product used for unknown indication
     Dosage: UNK, QD
     Route: 065
     Dates: start: 20161104
  30. PREDNISOLONE [Concomitant]
     Active Substance: PREDNISOLONE
     Indication: Product used for unknown indication
     Dosage: UNK, QD
     Route: 065
     Dates: start: 20170802, end: 20170802
  31. PREDNISOLONE [Concomitant]
     Active Substance: PREDNISOLONE
     Dosage: UNK, QD
     Route: 065
     Dates: start: 20170830, end: 20170830
  32. PREDNISOLONE [Concomitant]
     Active Substance: PREDNISOLONE
     Dosage: UNK, QD
     Route: 065
     Dates: start: 20180613, end: 20180613
  33. PREDNISOLONE [Concomitant]
     Active Substance: PREDNISOLONE
     Dosage: UNK, QD
     Route: 065
     Dates: start: 20180626, end: 20180626
  34. PREDNISOLONE [Concomitant]
     Active Substance: PREDNISOLONE
     Dosage: UNK, QD
     Route: 065
     Dates: start: 20180724, end: 20180724
  35. PREDNISOLONE [Concomitant]
     Active Substance: PREDNISOLONE
     Dosage: UNK, QD
     Route: 065
     Dates: start: 20180821, end: 20180821
  36. PREDNISOLONE [Concomitant]
     Active Substance: PREDNISOLONE
     Dosage: UNK, QD
     Route: 065
     Dates: start: 20180904, end: 20180904
  37. PREDNISOLONE [Concomitant]
     Active Substance: PREDNISOLONE
     Dosage: UNK, QD
     Route: 065
     Dates: start: 20181011, end: 20181011
  38. PREDNISOLONE [Concomitant]
     Active Substance: PREDNISOLONE
     Dosage: UNK, QD
     Route: 065
     Dates: start: 20181122, end: 20181122
  39. PREDNISOLONE [Concomitant]
     Active Substance: PREDNISOLONE
     Dosage: UNK, QD
     Route: 065
     Dates: start: 20181107, end: 20181107
  40. RAMIPRIL [Concomitant]
     Active Substance: RAMIPRIL
     Indication: Hypertension
     Dosage: UNK
     Route: 065
     Dates: start: 20180526, end: 20180801
  41. SIMVASTATIN [Concomitant]
     Active Substance: SIMVASTATIN
     Indication: Hyperlipidaemia
     Dosage: UNK, QD
     Route: 065
  42. HYDROXYUREA [Concomitant]
     Active Substance: HYDROXYUREA
     Indication: Product used for unknown indication
     Dosage: UNK, QD
     Route: 065
     Dates: start: 20131127, end: 20151025
  43. HYDROXYUREA [Concomitant]
     Active Substance: HYDROXYUREA
     Dosage: UNK, QD
     Route: 065
     Dates: start: 20140811, end: 20151025
  44. HYDROXYUREA [Concomitant]
     Active Substance: HYDROXYUREA
     Dosage: UNK, QD
     Route: 065
     Dates: start: 20160321, end: 20161104
  45. TORSEMIDE [Concomitant]
     Active Substance: TORSEMIDE
     Indication: Hyperlipidaemia
     Dosage: UNK, QD
     Route: 065
  46. ANAGRELIDE HYDROCHLORIDE [Concomitant]
     Active Substance: ANAGRELIDE HYDROCHLORIDE
     Indication: Myofascial pain syndrome
     Dosage: UNK, QD
     Route: 065
     Dates: start: 20151026, end: 20151102
  47. ANAGRELIDE HYDROCHLORIDE [Concomitant]
     Active Substance: ANAGRELIDE HYDROCHLORIDE
     Dosage: UNK, QD
     Route: 065
     Dates: start: 20151026, end: 20160106
  48. ANAGRELIDE HYDROCHLORIDE [Concomitant]
     Active Substance: ANAGRELIDE HYDROCHLORIDE
     Dosage: 2 DOSAGE FORM, QD
     Route: 065
     Dates: start: 20160107, end: 201602
  49. ANAGRELIDE HYDROCHLORIDE [Concomitant]
     Active Substance: ANAGRELIDE HYDROCHLORIDE
     Dosage: UNK UNK, QD
     Route: 065
     Dates: start: 20170509, end: 20170511
  50. ZALDIAR [Concomitant]
     Active Substance: ACETAMINOPHEN\TRAMADOL HYDROCHLORIDE
     Indication: Product used for unknown indication
     Dosage: UNK
     Route: 065

REACTIONS (3)
  - Dyspnoea [Recovered/Resolved]
  - Fatigue [Recovered/Resolved]
  - Hypoacusis [Recovered/Resolved]

NARRATIVE: CASE EVENT DATE: 20180418
